FAERS Safety Report 4392766-4 (Version None)
Quarter: 2004Q3

REPORT INFORMATION
  Report Type: 
  Country: None (occurrence: None)
  Receive Date: 20040706
  Receipt Date: 20040618
  Transmission Date: 20050211
  Serious: Yes (Hospitalization)
  Sender: FDA-Public Use
  Company Number: 2004UW12494

PATIENT
  Age: 75 Year
  Sex: Male
  Weight: 109.3169 kg

DRUGS (9)
  1. CRESTOR [Suspect]
     Dosage: 10 MG QD PO
     Route: 048
     Dates: start: 20040106, end: 20040101
  2. CRESTOR [Suspect]
     Dosage: 10 MG QD PO
     Route: 048
  3. WARFARIN SODIUM [Suspect]
  4. ALTACE [Concomitant]
  5. FLOMAX [Concomitant]
  6. LOPRESSOR [Concomitant]
  7. NORVASC [Concomitant]
  8. PROTONIX [Concomitant]
  9. TOPAMAX [Concomitant]

REACTIONS (3)
  - EPISTAXIS [None]
  - FAECES DISCOLOURED [None]
  - INTERNATIONAL NORMALISED RATIO INCREASED [None]
